FAERS Safety Report 8018391-1 (Version None)
Quarter: 2012Q1

REPORT INFORMATION
  Report Type: 
  Country: None (occurrence: None)
  Receive Date: 20120103
  Receipt Date: 20111223
  Transmission Date: 20120608
  Serious: Yes (Hospitalization)
  Sender: FDA-Public Use
  Company Number: US-BAYER-2011-046207

PATIENT
  Age: 36 Year
  Sex: Female
  Weight: 72.562 kg

DRUGS (10)
  1. RAMIPRIL [Concomitant]
     Dosage: UNK
     Dates: start: 20090101
  2. NOVOLOG [Concomitant]
     Dosage: UNK
     Dates: start: 20040101
  3. AZITHROMYCIN [Concomitant]
     Dosage: UNK
     Dates: start: 20090101
  4. THYROID TAB [Concomitant]
     Dosage: UNK
     Dates: start: 20070101
  5. LANTUS [Concomitant]
     Dosage: UNK
     Dates: start: 20060101, end: 20090101
  6. PAROXETINE HCL [Concomitant]
     Dosage: UNK
     Dates: start: 20070101
  7. VITAMIN C [Concomitant]
     Dosage: UNK UNK, PRN
     Dates: start: 20010101
  8. SULFAMETHOXAZOLE AND TRIMETHOPRIM [Concomitant]
     Dosage: UNK
     Dates: start: 20090101
  9. POTASSIUM CHLORIDE [Concomitant]
     Dosage: UNK
     Dates: start: 20090101
  10. YAZ [Suspect]
     Indication: POLYCYSTIC OVARIES

REACTIONS (5)
  - ANHEDONIA [None]
  - OEDEMA PERIPHERAL [None]
  - THROMBOPHLEBITIS SUPERFICIAL [None]
  - PAIN IN EXTREMITY [None]
  - EMOTIONAL DISTRESS [None]
